FAERS Safety Report 17229167 (Version 1)
Quarter: 2020Q1

REPORT INFORMATION
  Report Type: Spontaneous
  Country: FR (occurrence: FR)
  Receive Date: 20200103
  Receipt Date: 20200103
  Transmission Date: 20200409
  Serious: Yes (Life-Threatening)
  Sender: FDA-Public Use
  Company Number: FR-UCBSA-2019056893

PATIENT
  Age: 27 Year
  Sex: Female
  Weight: 46 kg

DRUGS (2)
  1. ADRENALINE [EPINEPHRINE] [Suspect]
     Active Substance: EPINEPHRINE
     Indication: HYPERSENSITIVITY
     Dates: start: 20190705
  2. CIMZIA [Suspect]
     Active Substance: CERTOLIZUMAB PEGOL
     Indication: ANKYLOSING SPONDYLITIS
     Route: 058
     Dates: start: 20190704

REACTIONS (3)
  - Rash [Recovered/Resolved]
  - Maternal exposure during pregnancy [Unknown]
  - Stress cardiomyopathy [Recovered/Resolved]

NARRATIVE: CASE EVENT DATE: 20190704
